FAERS Safety Report 9041079 (Version 1)
Quarter: 2013Q1

REPORT INFORMATION
  Report Type: Report from Study
  Country: US (occurrence: US)
  Receive Date: 20130129
  Receipt Date: 20130129
  Transmission Date: 20140127
  Serious: No
  Sender: FDA-Public Use
  Company Number: US-ABBOTT-12P-163-0900783-00

PATIENT
  Age: 49 Year
  Sex: Male
  Weight: 67.19 kg

DRUGS (18)
  1. HUMIRA 40 MG/0.8 ML PEN [Suspect]
     Indication: PSORIATIC ARTHROPATHY
     Route: 058
     Dates: start: 201110
  2. GUAIFENESIN [Concomitant]
     Indication: COUGH
  3. OMEPRAZOLE [Concomitant]
     Indication: HAEMATOCHEZIA
  4. FOLIC ACID [Concomitant]
     Indication: PRODUCT USED FOR UNKNOWN INDICATION
  5. ZYRTEC [Concomitant]
     Indication: PRODUCT USED FOR UNKNOWN INDICATION
  6. MOTRIN IB [Concomitant]
     Indication: PRODUCT USED FOR UNKNOWN INDICATION
  7. LOVAZA [Concomitant]
     Indication: PRODUCT USED FOR UNKNOWN INDICATION
  8. MULTIVITAMIN [Concomitant]
     Indication: PRODUCT USED FOR UNKNOWN INDICATION
  9. FLUOCINOLONE ACETONIDE [Concomitant]
     Indication: PSORIASIS
     Dosage: TO AFFECTED AREA
  10. CLOBETASOL PROPIONATE [Concomitant]
     Indication: PSORIASIS
     Dosage: TO AFFECTED AREA
  11. KETOCONAZOLE [Concomitant]
     Indication: PSORIASIS
  12. HYDROCORTISONE [Concomitant]
     Indication: PSORIASIS
     Dosage: TO AFFECTED AREA ON FACE
  13. VOLTAREN [Concomitant]
     Indication: PRODUCT USED FOR UNKNOWN INDICATION
  14. CALCIUM +D [Concomitant]
     Indication: PRODUCT USED FOR UNKNOWN INDICATION
  15. TRIAMCINOLONE ACETONIDE [Concomitant]
     Indication: PRODUCT USED FOR UNKNOWN INDICATION
  16. METHOTREXATE [Concomitant]
     Indication: PRODUCT USED FOR UNKNOWN INDICATION
  17. ASPIRIN [Concomitant]
     Indication: PROPHYLAXIS
  18. BETADINE [Concomitant]
     Indication: PSORIASIS
     Dosage: TO BODY, USES WITH CREAMS

REACTIONS (8)
  - Enuresis [Recovered/Resolved]
  - Micturition urgency [Recovered/Resolved]
  - Headache [Not Recovered/Not Resolved]
  - Unevaluable event [Not Recovered/Not Resolved]
  - Depressed level of consciousness [Not Recovered/Not Resolved]
  - Eye pain [Not Recovered/Not Resolved]
  - Erythema [Unknown]
  - Skin swelling [Unknown]
